FAERS Safety Report 6834511-6 (Version None)
Quarter: 2010Q3

REPORT INFORMATION
  Report Type: 
  Country: None (occurrence: None)
  Receive Date: 20100712
  Receipt Date: 20070420
  Transmission Date: 20110219
  Serious: No
  Sender: FDA-Public Use
  Company Number: US-PFIZER INC-2007032909

PATIENT
  Age: 68 Year
  Sex: Male
  Weight: 88.45 kg

DRUGS (4)
  1. CHANTIX [Suspect]
     Indication: SMOKING CESSATION THERAPY
     Route: 048
     Dates: start: 20070401
  2. HERBAL PREPARATION [Concomitant]
  3. MULTI-VITAMINS [Concomitant]
  4. THOMAPYRIN [Concomitant]
     Indication: HEADACHE

REACTIONS (4)
  - CHEST PAIN [None]
  - DYSPEPSIA [None]
  - HEADACHE [None]
  - INSOMNIA [None]
